FAERS Safety Report 18297211 (Version 1)
Quarter: 2020Q3

REPORT INFORMATION
  Report Type: Other
  Country: US (occurrence: US)
  Receive Date: 20200923
  Receipt Date: 20200923
  Transmission Date: 20201103
  Serious: Yes (Other)
  Sender: FDA-Public Use
  Company Number: US-AJANTA PHARMA USA INC.-2091048

PATIENT
  Sex: Female

DRUGS (1)
  1. METFORMIN HYDROCHLORIDE (ANDA 213651) [Suspect]
     Active Substance: METFORMIN HYDROCHLORIDE
     Indication: OVARIAN CANCER

REACTIONS (1)
  - Rash [Unknown]
